FAERS Safety Report 17744246 (Version 1)
Quarter: 2020Q2

REPORT INFORMATION
  Report Type: Spontaneous
  Country: US (occurrence: US)
  Receive Date: 20200505
  Receipt Date: 20200505
  Transmission Date: 20200714
  Serious: Yes (Other)
  Sender: FDA-Public Use
  Company Number: US-EMCURE PHARMACEUTICALS LTD-2020-EPL-000533

PATIENT
  Age: 67 Year
  Sex: Female

DRUGS (6)
  1. 5-FLUOROURACIL [Concomitant]
     Active Substance: FLUOROURACIL
     Indication: PANCREATIC CARCINOMA METASTATIC
     Dosage: 2400 MILLIGRAM/SQ. METER, FIRST CYCLE, CONTINUOUS OVER 48 H WITHOUT BOLUS
     Dates: start: 201311, end: 201311
  2. ONDANSETRON [Concomitant]
     Active Substance: ONDANSETRON
     Indication: PREMEDICATION
     Dosage: 12 MILLIGRAM
     Route: 042
     Dates: start: 201311
  3. DEXAMETHASONE. [Concomitant]
     Active Substance: DEXAMETHASONE
     Indication: PREMEDICATION
     Dosage: 10 MILLIGRAM
     Route: 042
     Dates: start: 201311
  4. ATROPINE. [Concomitant]
     Active Substance: ATROPINE
     Dosage: 1 MG ATROPINE IVP (IV PUSH)
     Route: 042
     Dates: start: 201311, end: 201311
  5. OXALIPLATIN. [Suspect]
     Active Substance: OXALIPLATIN
     Indication: PANCREATIC CARCINOMA METASTATIC
     Dosage: 85 MILLIGRAM/SQ. METER, FIRST CYCLE, CONTINUOUS OVER 48 H WITHOUT BOLUS
     Dates: start: 201311, end: 201311
  6. IRINOTECAN HYDROCHLORIDE. [Suspect]
     Active Substance: IRINOTECAN HYDROCHLORIDE
     Indication: PANCREATIC CARCINOMA METASTATIC
     Dosage: 180 MILLIGRAM/SQ. METER, FIRST CYCLE, CONTINUOUS INFUSION OVER 48 H WITHOUT BOLUS
     Dates: start: 201311, end: 201311

REACTIONS (4)
  - Aphasia [Recovered/Resolved]
  - Paralysis [Recovered/Resolved]
  - Asthenia [Recovered/Resolved]
  - Off label use [Unknown]

NARRATIVE: CASE EVENT DATE: 201311
